FAERS Safety Report 10412693 (Version 1)
Quarter: 2014Q2

REPORT INFORMATION
  Report Type: Spontaneous
  Country: US (occurrence: None)
  Receive Date: 20140604
  Receipt Date: 20140604
  Transmission Date: 20141212
  Serious: Yes (Hospitalization)
  Sender: FDA-Public Use
  Company Number: 163-POMAL-14022091

PATIENT
  Age: 72 Year
  Sex: Female
  Weight: 70.31 kg

DRUGS (2)
  1. POMALYST [Suspect]
     Indication: PLASMA CELL MYELOMA
     Route: 048
     Dates: start: 20130906
  2. PROCRIT(ERYTHROPOIETIN)(UNKNOWN) [Concomitant]

REACTIONS (1)
  - Urinary tract infection [None]
